FAERS Safety Report 4802277-7 (Version None)
Quarter: 2005Q4

REPORT INFORMATION
  Report Type: 
  Country: None (occurrence: None)
  Receive Date: 20051012
  Receipt Date: 20050929
  Transmission Date: 20060501
  Serious: Yes (Other)
  Sender: FDA-Public Use
  Company Number: 2005135456

PATIENT
  Age: 50 Year
  Sex: Female

DRUGS (2)
  1. CELEBREX [Suspect]
     Indication: SHOULDER PAIN
     Dosage: 200 MG (100 MG, 2 IN 1 D)
     Dates: start: 20000101
  2. IMITREX [Concomitant]

REACTIONS (9)
  - CHOLECYSTECTOMY [None]
  - DRUG EFFECT DECREASED [None]
  - FALL [None]
  - OESOPHAGEAL ULCER [None]
  - OSTEOPENIA [None]
  - OSTEOPOROSIS [None]
  - ROTATOR CUFF SYNDROME [None]
  - SPINAL FRACTURE [None]
  - WEIGHT INCREASED [None]
